FAERS Safety Report 16724460 (Version 1)
Quarter: 2019Q3

REPORT INFORMATION
  Report Type: Spontaneous
  Country: US (occurrence: US)
  Receive Date: 20190821
  Receipt Date: 20190821
  Transmission Date: 20191005
  Serious: Yes (Life-Threatening, Hospitalization)
  Sender: FDA-Public Use
  Company Number: US-PFIZER INC-2019357147

PATIENT
  Age: 70 Year
  Sex: Female
  Weight: 52.16 kg

DRUGS (3)
  1. IBRANCE [Suspect]
     Active Substance: PALBOCICLIB
     Dosage: 100 MG, CYCLIC (TOOK IT 7 DAYS )
     Dates: start: 20190614, end: 20190620
  2. IBRANCE [Suspect]
     Active Substance: PALBOCICLIB
     Dosage: 100 MG, CYCLIC
     Dates: start: 20190726, end: 20190815
  3. IBRANCE [Suspect]
     Active Substance: PALBOCICLIB
     Indication: BREAST CANCER METASTATIC
     Dosage: UNK
     Dates: end: 20190606

REACTIONS (5)
  - Full blood count decreased [Unknown]
  - Neoplasm progression [Unknown]
  - Small intestinal obstruction [Unknown]
  - Abscess intestinal [Unknown]
  - Post procedural fistula [Unknown]

NARRATIVE: CASE EVENT DATE: 20190123
